FAERS Safety Report 6371092-8 (Version None)
Quarter: 2009Q3

REPORT INFORMATION
  Report Type: 
  Country: None (occurrence: None)
  Receive Date: 20090923
  Receipt Date: 20090911
  Transmission Date: 20100115
  Serious: Yes (Hospitalization)
  Sender: FDA-Public Use
  Company Number: PHHY2009DE39598

PATIENT
  Sex: Female

DRUGS (1)
  1. COARTEM [Suspect]
     Dosage: UNK
     Route: 048
     Dates: start: 20090831, end: 20090903

REACTIONS (5)
  - DYSPNOEA [None]
  - FATIGUE [None]
  - MUSCLE SWELLING [None]
  - MUSCULAR WEAKNESS [None]
  - PHARYNGEAL OEDEMA [None]
